FAERS Safety Report 22060539 (Version 1)
Quarter: 2023Q1

REPORT INFORMATION
  Report Type: Spontaneous
  Country: DE (occurrence: None)
  Receive Date: 20230303
  Receipt Date: 20230303
  Transmission Date: 20230417
  Serious: Yes (Hospitalization, Other)
  Sender: FDA-Public Use
  Company Number: 2023A049549

PATIENT
  Age: 54 Year
  Weight: 62 kg

DRUGS (1)
  1. BUDESONIDE\FORMOTEROL\GLYCOPYRRONIUM [Suspect]
     Active Substance: BUDESONIDE\FORMOTEROL\GLYCOPYRRONIUM
     Route: 055

REACTIONS (4)
  - Coronary artery disease [Unknown]
  - Asthma [Unknown]
  - Myocardial necrosis marker increased [Unknown]
  - Adverse event [Unknown]
